FAERS Safety Report 23537730 (Version 1)
Quarter: 2024Q1

REPORT INFORMATION
  Report Type: Report from Study
  Country: US (occurrence: None)
  Receive Date: 20240219
  Receipt Date: 20240219
  Transmission Date: 20240409
  Serious: Yes (Other)
  Sender: FDA-Public Use
  Company Number: 2024A039902

PATIENT
  Sex: Female

DRUGS (1)
  1. CALQUENCE [Suspect]
     Active Substance: ACALABRUTINIB
     Indication: Hodgkin^s disease
     Route: 048
     Dates: start: 20210329

REACTIONS (6)
  - Cataract [Unknown]
  - Blood pressure measurement [Unknown]
  - Decreased activity [Unknown]
  - Pain [Unknown]
  - Energy increased [Unknown]
  - Feeling abnormal [Unknown]
